FAERS Safety Report 5366295-5 (Version None)
Quarter: 2007Q2

REPORT INFORMATION
  Report Type: 
  Country: None (occurrence: None)
  Receive Date: 20070619
  Receipt Date: 20070619
  Transmission Date: 20071010
  Serious: Yes (Life-Threatening)
  Sender: FDA-Public Use
  Company Number: None

PATIENT
  Age: 82 Year
  Sex: Male
  Weight: 58.0151 kg

DRUGS (1)
  1. FLEETS PHOSPHO SODA [Suspect]
     Indication: COLONOSCOPY
     Dosage: 45CC PO X 1 1 PO
     Route: 048
     Dates: start: 20070319, end: 20070319

REACTIONS (3)
  - ATRIAL FIBRILLATION [None]
  - VENTRICULAR EXTRASYSTOLES [None]
  - VENTRICULAR TACHYCARDIA [None]
